FAERS Safety Report 4531577-3 (Version None)
Quarter: 2004Q4

REPORT INFORMATION
  Report Type: 
  Country: None (occurrence: None)
  Receive Date: 20041216
  Receipt Date: 20041203
  Transmission Date: 20050328
  Serious: No
  Sender: FDA-Public Use
  Company Number: 2004-BP-13275RO

PATIENT
  Age: 9 Year
  Sex: Male

DRUGS (1)
  1. METHOTREXATE [Suspect]
     Indication: ACUTE LYMPHOCYTIC LEUKAEMIA
     Dosage: 196 MG (NR, ONCE), IT
     Route: 037

REACTIONS (11)
  - ACCIDENTAL OVERDOSE [None]
  - BACK PAIN [None]
  - CARDIOPULMONARY FAILURE [None]
  - COMA [None]
  - CONVULSION [None]
  - HEADACHE [None]
  - HYPOAESTHESIA [None]
  - MEDICATION ERROR [None]
  - MEMORY IMPAIRMENT [None]
  - NAUSEA [None]
  - VOMITING [None]
